FAERS Safety Report 7213601-2 (Version None)
Quarter: 2011Q1

REPORT INFORMATION
  Report Type: 
  Country: None (occurrence: None)
  Receive Date: 20110106
  Receipt Date: 20101227
  Transmission Date: 20110831
  Serious: Yes (Hospitalization)
  Sender: FDA-Public Use
  Company Number: TH-GILEAD-2010-0034748

PATIENT
  Sex: Female
  Weight: 51.95 kg

DRUGS (5)
  1. ATAZANAVIR SULFATE [Concomitant]
     Indication: HIV INFECTION
     Route: 048
     Dates: start: 20091204
  2. EMTRICITABINE/TENOFOVIR DISOPROXIL FUMARATE [Suspect]
     Indication: HIV INFECTION
     Route: 048
     Dates: start: 20091204
  3. TRAMAL [Concomitant]
     Indication: HEADACHE
     Route: 048
  4. PARACETAMOL [Concomitant]
     Indication: HEADACHE
     Route: 048
  5. IBUPROFEN [Concomitant]
     Indication: HEADACHE
     Route: 048

REACTIONS (1)
  - CEREBRAL TOXOPLASMOSIS [None]
